FAERS Safety Report 4341182-X (Version None)
Quarter: 2004Q2

REPORT INFORMATION
  Report Type: 
  Country: None (occurrence: None)
  Receive Date: 20040413
  Receipt Date: 20040329
  Transmission Date: 20050107
  Serious: Yes (Disabling)
  Sender: FDA-Public Use
  Company Number: 2004UW03630

PATIENT
  Age: 48 Year
  Sex: Female

DRUGS (4)
  1. CRESTOR [Suspect]
     Indication: HYPERCHOLESTEROLAEMIA
     Dosage: 10 MG HS PO
     Route: 048
     Dates: start: 20030101, end: 20040201
  2. CRESTOR [Suspect]
     Indication: HYPERCHOLESTEROLAEMIA
     Dosage: 10 MG HS PO
     Route: 048
     Dates: start: 20030501, end: 20040201
  3. VENTOLIN [Concomitant]
  4. ORAL B COMPLEX VITAMINS [Concomitant]

REACTIONS (3)
  - HEART RATE ABNORMAL [None]
  - INSOMNIA [None]
  - TACHYCARDIA [None]
